FAERS Safety Report 18277816 (Version 2)
Quarter: 2020Q3

REPORT INFORMATION
  Report Type: Report from Study
  Country: US (occurrence: US)
  Receive Date: 20200917
  Receipt Date: 20200922
  Transmission Date: 20201103
  Serious: No
  Sender: FDA-Public Use
  Company Number: NVSC2020US251945

PATIENT
  Age: 51 Year
  Sex: Female

DRUGS (1)
  1. GLATOPA [Suspect]
     Active Substance: GLATIRAMER ACETATE
     Indication: MULTIPLE SCLEROSIS
     Dosage: 40 MG (3 TIMES PER WEEK)
     Route: 058
     Dates: start: 20200914

REACTIONS (5)
  - Skin disorder [Unknown]
  - Weight fluctuation [Unknown]
  - Injection site erythema [Unknown]
  - Injection site pain [Unknown]
  - Injection site urticaria [Unknown]

NARRATIVE: CASE EVENT DATE: 20200914
